FAERS Safety Report 24765870 (Version 1)
Quarter: 2024Q4

REPORT INFORMATION
  Report Type: Spontaneous
  Country: US (occurrence: US)
  Receive Date: 20241223
  Receipt Date: 20241223
  Transmission Date: 20250114
  Serious: Yes (Death, Life-Threatening, Hospitalization)
  Sender: MYLAN
  Company Number: US-MYLANLABS-2024M1112708

PATIENT
  Age: 52 Year
  Sex: Male

DRUGS (5)
  1. TRETINOIN [Suspect]
     Active Substance: TRETINOIN
     Indication: Chronic lymphocytic leukaemia
     Dosage: UNK
     Route: 065
  2. TRETINOIN [Suspect]
     Active Substance: TRETINOIN
     Indication: Acute promyelocytic leukaemia
  3. DEXAMETHASONE [Suspect]
     Active Substance: DEXAMETHASONE
     Indication: Prophylaxis
     Dosage: UNK
     Route: 065
  4. HYDROXYUREA [Concomitant]
     Active Substance: HYDROXYUREA
     Indication: Chronic lymphocytic leukaemia
     Dosage: UNK
     Route: 065
  5. HYDROXYUREA [Concomitant]
     Active Substance: HYDROXYUREA
     Indication: Acute promyelocytic leukaemia

REACTIONS (6)
  - Cardio-respiratory arrest [Fatal]
  - Differentiation syndrome [Fatal]
  - Acute respiratory failure [Unknown]
  - Disseminated intravascular coagulation [Unknown]
  - Drug ineffective [Unknown]
  - Off label use [Unknown]
